FAERS Safety Report 5105018-1 (Version None)
Quarter: 2006Q3

REPORT INFORMATION
  Report Type: 
  Country: None (occurrence: None)
  Receive Date: 20060911
  Receipt Date: 20060825
  Transmission Date: 20061208
  Serious: Yes (Hospitalization, Disabling, Other)
  Sender: FDA-Public Use
  Company Number: 2006088605

PATIENT
  Sex: Female
  Weight: 54.4316 kg

DRUGS (6)
  1. PREDNISONE TAB [Suspect]
     Indication: COLITIS
     Dosage: 1 IN 1 D, ORAL
     Route: 048
  2. DETROL [Suspect]
     Indication: INCONTINENCE
     Dosage: 1 IN 1 D, ORAL
     Route: 048
     Dates: start: 20060701, end: 20060712
  3. AMIODARONE (AMIODARONE) [Concomitant]
  4. VITAMINS (VITAMINS) [Concomitant]
  5. CYANOCOBALMIN (CYANOCOBALAMIN) [Concomitant]
  6. FOLIC ACID [Concomitant]

REACTIONS (11)
  - ARTHRALGIA [None]
  - BEDRIDDEN [None]
  - COMPLICATION OF DEVICE INSERTION [None]
  - CONDITION AGGRAVATED [None]
  - DEMENTIA [None]
  - DIARRHOEA [None]
  - FALL [None]
  - LOWER LIMB FRACTURE [None]
  - REFUSAL OF TREATMENT BY RELATIVE [None]
  - UPPER LIMB FRACTURE [None]
  - URINARY INCONTINENCE [None]
